FAERS Safety Report 7425053-8 (Version None)
Quarter: 2011Q2

REPORT INFORMATION
  Report Type: 
  Country: None (occurrence: None)
  Receive Date: 20110420
  Receipt Date: 20110413
  Transmission Date: 20111010
  Serious: Yes (Life-Threatening, Hospitalization, Other)
  Sender: FDA-Public Use
  Company Number: GB-AMGEN-GBRSP2011020010

PATIENT
  Age: 64 Year
  Sex: Female

DRUGS (8)
  1. MEBEVERINE HYDROCHLORIDE [Concomitant]
     Dosage: UNK
  2. ACETAMINOPHEN AND CODEINE PHOSPHATE [Concomitant]
     Dosage: UNK
  3. ACETAMINOPHEN [Concomitant]
     Dosage: UNK
  4. DIDRONEL PMO [Concomitant]
     Dosage: UNK
  5. ENBREL [Suspect]
     Indication: RHEUMATOID ARTHRITIS
     Dosage: 50 MG, WEEKLY
     Route: 058
     Dates: start: 20070810, end: 20110128
  6. NEOCLARITYN [Concomitant]
     Dosage: UNK
  7. LANSOPRAZOLE [Concomitant]
     Dosage: UNK
  8. PREDNISOLONE [Concomitant]
     Dosage: UNK

REACTIONS (1)
  - BREAST CANCER [None]
